FAERS Safety Report 12586896 (Version 1)
Quarter: 2016Q3

REPORT INFORMATION
  Report Type: Spontaneous
  Country: FR (occurrence: FR)
  Receive Date: 20160725
  Receipt Date: 20160725
  Transmission Date: 20161109
  Serious: Yes (Hospitalization)
  Sender: FDA-Public Use
  Company Number: FR-BAYER-2016-136650

PATIENT
  Age: 78 Year
  Sex: Female

DRUGS (16)
  1. ACUPAN [Suspect]
     Active Substance: NEFOPAM HYDROCHLORIDE
     Indication: PAIN
     Dosage: 1 AMPULLA EVERY 6 HOURS WHEN PAINS
     Dates: end: 20160629
  2. CIFLOX [Suspect]
     Active Substance: CIPROFLOXACIN
     Indication: OSTEITIS
     Dosage: 500 MG, IN MORNING
     Route: 048
     Dates: start: 20160509, end: 20160701
  3. CEFEPIME [Concomitant]
     Active Substance: CEFEPIME HYDROCHLORIDE
     Indication: OSTEITIS
     Dosage: 2 G, QD
     Route: 042
     Dates: start: 20160509
  4. KARDEGIC [Concomitant]
     Active Substance: ASPIRIN LYSINE
     Dosage: 75 AT MIDDAY
  5. DEPAKINE [Concomitant]
     Active Substance: VALPROATE SODIUM
     Dosage: 500 MG, IN MORNING
  6. LANZOR [Concomitant]
     Active Substance: LANSOPRAZOLE
     Dosage: 15 MG IN THE EVENING
  7. BIPRETERAX [Concomitant]
     Active Substance: INDAPAMIDE\PERINDOPRIL
     Dosage: 10 / 2.5 IN THE MORNING
  8. AMLOR [Concomitant]
     Active Substance: AMLODIPINE BESYLATE
     Dosage: 10: ONCE A DAY
  9. LYRICA [Concomitant]
     Active Substance: PREGABALIN
     Dosage: 2 CAPSULES IN THE MORNING AND IN THE EVENING
  10. LEVOTHYROX [Concomitant]
     Active Substance: LEVOTHYROXINE
     Dosage: 125 ?G, IN THE MORNING
  11. DOLIPRANE [Concomitant]
     Active Substance: ACETAMINOPHEN
     Dosage: 1 G 4 TIMES A DAY PRN
  12. ZAMUDOL [Suspect]
     Active Substance: TRAMADOL HYDROCHLORIDE
     Indication: PAIN
     Dosage: 150 MORNING AND EVENING
     Route: 048
     Dates: end: 20160629
  13. LASILIX [Concomitant]
     Active Substance: FUROSEMIDE
     Dosage: 40: ONCE IN THE MORNING
  14. DEPAKINE [Concomitant]
     Active Substance: VALPROATE SODIUM
     Dosage: 500 MG IN THE MORNING AND IN THE EVENING
  15. LEVEMIR [Concomitant]
     Active Substance: INSULIN DETEMIR
     Dosage: 30 UNITS IN THE MORNING, 20 UNITS IN THE EVENING WITH PROTOCOL INSULINE
  16. TAHOR [Concomitant]
     Active Substance: ATORVASTATIN CALCIUM
     Dosage: 20 MG IN MORNING

REACTIONS (2)
  - Epilepsy [Recovered/Resolved]
  - Seizure [Recovered/Resolved]

NARRATIVE: CASE EVENT DATE: 20160628
